FAERS Safety Report 11267675 (Version 2)
Quarter: 2015Q3

REPORT INFORMATION
  Report Type: Report from Study
  Country: US (occurrence: US)
  Receive Date: 20150713
  Receipt Date: 20150803
  Transmission Date: 20151125
  Serious: Yes (Death, Hospitalization)
  Sender: FDA-Public Use
  Company Number: US-ACTELION-A-US2015-120752

PATIENT
  Age: 42 Year
  Sex: Female

DRUGS (3)
  1. VENTAVIS [Suspect]
     Active Substance: ILOPROST
     Indication: PULMONARY ARTERIAL HYPERTENSION
     Dosage: 5 MCG, 6-9 X/DAY
     Route: 055
     Dates: start: 20150626
  2. ADCIRCA [Concomitant]
     Active Substance: TADALAFIL
  3. MACITENTAN [Suspect]
     Active Substance: MACITENTAN
     Indication: PULMONARY ARTERIAL HYPERTENSION
     Dosage: 10 MG, QD
     Route: 048
     Dates: end: 20150707

REACTIONS (8)
  - Dyspnoea [Unknown]
  - Device breakage [Unknown]
  - Fluid retention [Unknown]
  - Device related infection [Unknown]
  - Pulmonary hypertension [Fatal]
  - Drug dose omission [Unknown]
  - Oxygen saturation decreased [Unknown]
  - Swelling [Unknown]
